FAERS Safety Report 6118441-3 (Version None)
Quarter: 2009Q1

REPORT INFORMATION
  Report Type: 
  Country: None (occurrence: None)
  Receive Date: 20090314
  Receipt Date: 20090224
  Transmission Date: 20090719
  Serious: No
  Sender: FDA-Public Use
  Company Number: US-ABBOTT-09P-163-0558451-00

PATIENT
  Age: 22 Year
  Sex: Female
  Weight: 89.438 kg

DRUGS (10)
  1. HUMIRA [Suspect]
     Indication: PSORIASIS
     Dates: start: 20090126, end: 20090201
  2. HUMIRA [Suspect]
     Indication: PSORIATIC ARTHROPATHY
  3. LYRICA [Suspect]
     Indication: DRUG USE FOR UNKNOWN INDICATION
     Route: 048
     Dates: start: 20080313
  4. CYMBALTA [Suspect]
     Indication: NEURALGIA
     Route: 048
     Dates: start: 20080308
  5. LYRICA [Concomitant]
     Indication: NEURALGIA
  6. CYMBALTA [Concomitant]
  7. ATARAX [Concomitant]
     Indication: PSORIASIS
     Dosage: 1 EVERY 24 HOURS AS NEEDED FOR ITCH
     Route: 048
  8. TRIAMCINOLONE [Concomitant]
     Indication: PSORIASIS
     Dosage: 0.1 CREAM AS REQUIRED
     Route: 061
  9. DOVONEX [Concomitant]
     Indication: PSORIASIS
     Dosage: AS REQUIRED
     Route: 061
  10. UNKNOWN DIABETIC MEDICATIONS [Concomitant]
     Indication: TYPE 1 DIABETES MELLITUS

REACTIONS (3)
  - DIABETIC NEUROPATHY [None]
  - NEURALGIA [None]
  - PAIN [None]
